FAERS Safety Report 6401054-3 (Version None)
Quarter: 2009Q4

REPORT INFORMATION
  Report Type: 
  Country: None (occurrence: None)
  Receive Date: 20091013
  Receipt Date: 20091013
  Transmission Date: 20100525
  Serious: No
  Sender: FDA-Public Use
  Company Number: None

PATIENT
  Age: 50 Year
  Sex: Female
  Weight: 65.318 kg

DRUGS (2)
  1. NICOTROL [Suspect]
     Indication: EMPHYSEMA
     Dosage: 5 CARTRIDGES PER DAY 5 PER DAY
     Dates: start: 20030129, end: 20050903
  2. NICOTINE [Suspect]
     Indication: SMOKING CESSATION THERAPY
     Dosage: 1 PATCH
     Dates: start: 20050904, end: 20090904

REACTIONS (24)
  - AGITATION [None]
  - AMNESIA [None]
  - ANGER [None]
  - CONFUSIONAL STATE [None]
  - CRYING [None]
  - DEPRESSION [None]
  - DIZZINESS [None]
  - DRUG HYPERSENSITIVITY [None]
  - DRY EYE [None]
  - DRY SKIN [None]
  - EUPHORIC MOOD [None]
  - FATIGUE [None]
  - FEAR [None]
  - FOOD ALLERGY [None]
  - HYPOTHALAMO-PITUITARY DISORDER [None]
  - HYPOVENTILATION [None]
  - INSOMNIA [None]
  - METAMORPHOPSIA [None]
  - MUSCULOSKELETAL STIFFNESS [None]
  - SPEECH DISORDER [None]
  - STRESS [None]
  - THINKING ABNORMAL [None]
  - TREMOR [None]
  - VISION BLURRED [None]
